FAERS Safety Report 24137938 (Version 2)
Quarter: 2024Q3

REPORT INFORMATION
  Report Type: Spontaneous
  Country: US (occurrence: US)
  Receive Date: 20240725
  Receipt Date: 20240731
  Transmission Date: 20241016
  Serious: Yes (Other)
  Sender: AMERICAN REGENT
  Company Number: US-AMERICAN REGENT INC-2024002753

PATIENT
  Sex: Male

DRUGS (23)
  1. VENOFER [Suspect]
     Active Substance: IRON SUCROSE
     Indication: Product used for unknown indication
     Dosage: 100 MILLIGRAM
     Route: 042
     Dates: start: 20210416, end: 20210416
  2. VENOFER [Suspect]
     Active Substance: IRON SUCROSE
     Dosage: 200 MILLIGRAM
     Route: 042
     Dates: start: 20240523, end: 20240523
  3. MIRCERA [Suspect]
     Active Substance: METHOXY POLYETHYLENE GLYCOL-EPOETIN BETA
     Indication: Nephrogenic anaemia
     Dosage: UNK
     Route: 065
  4. MIRCERA [Suspect]
     Active Substance: METHOXY POLYETHYLENE GLYCOL-EPOETIN BETA
     Indication: Dialysis
     Dosage: 150 MICROGRAM
     Route: 065
     Dates: start: 20221110, end: 20221110
  5. MIRCERA [Suspect]
     Active Substance: METHOXY POLYETHYLENE GLYCOL-EPOETIN BETA
     Dosage: 200 MICROGRAM
     Route: 065
     Dates: start: 20221209, end: 20221209
  6. MIRCERA [Suspect]
     Active Substance: METHOXY POLYETHYLENE GLYCOL-EPOETIN BETA
     Dosage: 150 MICROGRAM
     Route: 065
     Dates: start: 20230107, end: 20230107
  7. MIRCERA [Suspect]
     Active Substance: METHOXY POLYETHYLENE GLYCOL-EPOETIN BETA
     Dosage: 150 MICROGRAM
     Route: 065
     Dates: start: 20230121, end: 20230121
  8. MIRCERA [Suspect]
     Active Substance: METHOXY POLYETHYLENE GLYCOL-EPOETIN BETA
     Dosage: 150 MICROGRAM
     Route: 065
     Dates: start: 20230210, end: 20230210
  9. MIRCERA [Suspect]
     Active Substance: METHOXY POLYETHYLENE GLYCOL-EPOETIN BETA
     Dosage: 150 MICROGRAM
     Route: 065
     Dates: start: 20230224, end: 20230224
  10. MIRCERA [Suspect]
     Active Substance: METHOXY POLYETHYLENE GLYCOL-EPOETIN BETA
     Dosage: 150 MICROGRAM
     Route: 065
     Dates: start: 20230310, end: 20230310
  11. MIRCERA [Suspect]
     Active Substance: METHOXY POLYETHYLENE GLYCOL-EPOETIN BETA
     Dosage: 150 MICROGRAM
     Route: 065
     Dates: start: 20230318, end: 20230318
  12. MIRCERA [Suspect]
     Active Substance: METHOXY POLYETHYLENE GLYCOL-EPOETIN BETA
     Dosage: 150 MICROGRAM
     Route: 065
     Dates: start: 20230713, end: 20230713
  13. MIRCERA [Suspect]
     Active Substance: METHOXY POLYETHYLENE GLYCOL-EPOETIN BETA
     Dosage: 200 MICROGRAM
     Route: 065
     Dates: start: 20230811, end: 20230811
  14. MIRCERA [Suspect]
     Active Substance: METHOXY POLYETHYLENE GLYCOL-EPOETIN BETA
     Dosage: 150 MICROGRAM
     Route: 065
     Dates: start: 20230911, end: 20230911
  15. MIRCERA [Suspect]
     Active Substance: METHOXY POLYETHYLENE GLYCOL-EPOETIN BETA
     Dosage: 150 MICROGRAM
     Route: 065
     Dates: start: 20230925, end: 20230925
  16. MIRCERA [Suspect]
     Active Substance: METHOXY POLYETHYLENE GLYCOL-EPOETIN BETA
     Dosage: 150 MICROGRAM
     Route: 065
     Dates: start: 20230930, end: 20230930
  17. MIRCERA [Suspect]
     Active Substance: METHOXY POLYETHYLENE GLYCOL-EPOETIN BETA
     Dosage: 200 MICROGRAM
     Route: 065
     Dates: start: 20231025, end: 20231025
  18. MIRCERA [Suspect]
     Active Substance: METHOXY POLYETHYLENE GLYCOL-EPOETIN BETA
     Dosage: 200 MICROGRAM
     Route: 065
     Dates: start: 20240211, end: 20240211
  19. MIRCERA [Suspect]
     Active Substance: METHOXY POLYETHYLENE GLYCOL-EPOETIN BETA
     Dosage: 200 MICROGRAM
     Route: 065
     Dates: start: 20240226, end: 20240226
  20. MIRCERA [Suspect]
     Active Substance: METHOXY POLYETHYLENE GLYCOL-EPOETIN BETA
     Dosage: 200 MICROGRAM
     Route: 065
     Dates: start: 20240508, end: 20240508
  21. SODIUM CHLORIDE [Concomitant]
     Active Substance: SODIUM CHLORIDE
     Indication: Product used for unknown indication
     Dosage: 1000 MILLILITER
     Route: 065
     Dates: start: 20231207
  22. SODIUM CHLORIDE [Concomitant]
     Active Substance: SODIUM CHLORIDE
     Dosage: 500 MILLILITER
     Route: 065
     Dates: start: 20240202
  23. ASPIRIN [Concomitant]
     Active Substance: ASPIRIN
     Indication: Product used for unknown indication
     Dosage: 81 MILLIGRAM, 1 IN 1 D
     Route: 048

REACTIONS (3)
  - Aplasia pure red cell [Unknown]
  - Fatigue [Unknown]
  - Dyspnoea [Unknown]
